FAERS Safety Report 7648399-7 (Version None)
Quarter: 2011Q3

REPORT INFORMATION
  Report Type: 
  Country: None (occurrence: None)
  Receive Date: 20110801
  Receipt Date: 20110720
  Transmission Date: 20111222
  Serious: Yes (Life-Threatening, Hospitalization)
  Sender: FDA-Public Use
  Company Number: DE-PFIZER INC-2011129794

PATIENT
  Age: 56 Year
  Sex: Female
  Weight: 82 kg

DRUGS (4)
  1. AROMASIN [Suspect]
     Dosage: UNK
     Route: 048
     Dates: start: 20080101
  2. CEFIXIME [Suspect]
     Indication: INFECTED BITES
     Dosage: 400 MG, DAILY
     Route: 048
     Dates: start: 20110531, end: 20110607
  3. NOVOTHYRAL [Concomitant]
     Indication: HYPOTHYROIDISM
     Dosage: 100 UG, 1X/DAY
     Route: 048
  4. BISOPROLOL [Concomitant]
     Indication: SINUS TACHYCARDIA
     Dosage: 5 MG, 1X/DAY
     Route: 048
     Dates: start: 20101101, end: 20110610

REACTIONS (7)
  - ABDOMINAL PAIN UPPER [None]
  - FAECES PALE [None]
  - CHROMATURIA [None]
  - LIVER DISORDER [None]
  - FATIGUE [None]
  - HEPATIC ENZYME INCREASED [None]
  - DYSGEUSIA [None]
